FAERS Safety Report 6215260-4 (Version None)
Quarter: 2009Q2

REPORT INFORMATION
  Report Type: 
  Country: None (occurrence: None)
  Receive Date: 20090604
  Receipt Date: 20090601
  Transmission Date: 20091009
  Serious: Yes (Hospitalization)
  Sender: FDA-Public Use
  Company Number: NL-ROXANE LABORATORIES, INC.-2009-RO-00542RO

PATIENT
  Age: 80 Year
  Sex: Female

DRUGS (2)
  1. LITHIUM CARBONATE [Suspect]
     Indication: DEPRESSION
  2. SALINE [Concomitant]
     Indication: DEHYDRATION
     Route: 042

REACTIONS (3)
  - DEHYDRATION [None]
  - DRUG TOXICITY [None]
  - RENAL FUNCTION TEST ABNORMAL [None]
